FAERS Safety Report 10389783 (Version 2)
Quarter: 2014Q3

REPORT INFORMATION
  Report Type: Spontaneous
  Country: BR (occurrence: BR)
  Receive Date: 20140818
  Receipt Date: 20140821
  Transmission Date: 20150326
  Serious: Yes (Death, Other)
  Sender: FDA-Public Use
  Company Number: BR-ASTRAZENECA-2014SE60790

PATIENT
  Age: 62 Year
  Sex: Male

DRUGS (4)
  1. BRILINTA [Suspect]
     Active Substance: TICAGRELOR
     Indication: MYOCARDIAL INFARCTION
     Route: 048
     Dates: start: 2012
  2. CONCOR [Concomitant]
     Active Substance: BISOPROLOL FUMARATE
     Route: 048
  3. 11 CONCOMITANT DRUGS [Concomitant]
  4. INSULIN [Concomitant]
     Active Substance: INSULIN NOS
     Indication: DIABETES MELLITUS
     Route: 058

REACTIONS (2)
  - Venous thrombosis limb [Unknown]
  - Death [Fatal]

NARRATIVE: CASE EVENT DATE: 201311
